FAERS Safety Report 7565740-4 (Version None)
Quarter: 2011Q2

REPORT INFORMATION
  Report Type: 
  Country: None (occurrence: None)
  Receive Date: 20110623
  Receipt Date: 20101122
  Transmission Date: 20111010
  Serious: No
  Sender: FDA-Public Use
  Company Number: US-MUTUAL PHARMACEUTICAL COMPANY, INC.-2010P1002823

PATIENT
  Sex: Male

DRUGS (1)
  1. METOCLOPRAMIDE [Suspect]
     Dates: start: 20010301, end: 20050101

REACTIONS (9)
  - TARDIVE DYSKINESIA [None]
  - DISTURBANCE IN ATTENTION [None]
  - UNEVALUABLE EVENT [None]
  - DYSKINESIA [None]
  - NEUROLEPTIC MALIGNANT SYNDROME [None]
  - SOLILOQUY [None]
  - STARING [None]
  - EMOTIONAL DISORDER [None]
  - INCORRECT DRUG ADMINISTRATION DURATION [None]
